FAERS Safety Report 9579573 (Version 2)
Quarter: 2013Q4

REPORT INFORMATION
  Report Type: Spontaneous
  Country: US (occurrence: US)
  Receive Date: 20131001
  Receipt Date: 20131001
  Transmission Date: 20140711
  Serious: No
  Sender: FDA-Public Use
  Company Number: US-AMGEN-USASP2013013194

PATIENT
  Age: 51 Year
  Sex: Male
  Weight: 96.15 kg

DRUGS (8)
  1. ENBREL [Suspect]
     Indication: RHEUMATOID ARTHRITIS
     Dosage: 50 MG, QWK
     Route: 058
     Dates: start: 20130104
  2. PAXIL                              /00500401/ [Concomitant]
     Dosage: 10 MG, UNK
     Route: 048
  3. BUTRANS                            /00444001/ [Concomitant]
     Dosage: 10 MUG, UNK, 10MCG/HR EX
  4. METHOTREXATE [Concomitant]
     Dosage: 80 MG, QWK
     Route: 058
  5. PROTONIX [Concomitant]
     Dosage: 20 MG, UNK
     Route: 048
  6. FOLIC ACID [Concomitant]
     Dosage: UNK
     Route: 048
  7. VITAMIN D                          /00107901/ [Concomitant]
     Dosage: 1000 UNIT, UNK
     Route: 048
  8. IRON [Concomitant]
     Dosage: 325 MG, UNK
     Route: 048

REACTIONS (13)
  - Eyelid oedema [Not Recovered/Not Resolved]
  - Eyelid thickening [Unknown]
  - Local swelling [Not Recovered/Not Resolved]
  - Joint swelling [Not Recovered/Not Resolved]
  - Musculoskeletal stiffness [Not Recovered/Not Resolved]
  - Joint stiffness [Not Recovered/Not Resolved]
  - Joint range of motion decreased [Not Recovered/Not Resolved]
  - Nausea [Recovered/Resolved]
  - Gait disturbance [Not Recovered/Not Resolved]
  - Urticaria [Recovered/Resolved]
  - Anaemia [Not Recovered/Not Resolved]
  - Gastrointestinal viral infection [Recovered/Resolved]
  - Tinea infection [Recovered/Resolved]
